FAERS Safety Report 15780515 (Version 4)
Quarter: 2025Q3

REPORT INFORMATION
  Report Type: Spontaneous
  Country: EU (occurrence: EU)
  Receive Date: 20190102
  Receipt Date: 20250926
  Transmission Date: 20251020
  Serious: Yes (Hospitalization)
  Sender: ROCHE
  Company Number: EU-ROCHE-2237450

PATIENT
  Age: 57 Year
  Sex: Male

DRUGS (3)
  1. MYCOPHENOLATE MOFETIL [Suspect]
     Active Substance: MYCOPHENOLATE MOFETIL
     Indication: Prophylaxis against transplant rejection
     Route: 065
  2. PREDNISOLONE [Suspect]
     Active Substance: PREDNISOLONE
     Indication: Prophylaxis against transplant rejection
     Route: 065
  3. TACROLIMUS [Suspect]
     Active Substance: TACROLIMUS
     Indication: Prophylaxis against transplant rejection
     Route: 065

REACTIONS (9)
  - Intestinal fistula [Recovering/Resolving]
  - Enterococcal bacteraemia [Unknown]
  - Diverticulitis [Unknown]
  - Endocarditis [Recovering/Resolving]
  - Diverticular perforation [Unknown]
  - Postoperative wound infection [Unknown]
  - Wound dehiscence [Recovering/Resolving]
  - Intestinal anastomosis [Recovering/Resolving]
  - Transplant failure [Unknown]
